FAERS Safety Report 7351571 (Version 2)
Quarter: 2013Q1

REPORT INFORMATION
  Report Type: Spontaneous
  Country: CH (occurrence: CH)
  Receive Date: 20100412
  Receipt Date: 20130304
  Transmission Date: 20140127
  Serious: Yes (Other)
  Sender: FDA-Public Use
  Company Number: PHHY2010CH19800

PATIENT
  Age: 60 Year
  Sex: Male

DRUGS (1)
  1. ZOMETA [Suspect]
     Indication: METASTASES TO BONE
     Dosage: 4 MG, PER MONTH
     Route: 042

REACTIONS (17)
  - Metastases to bone [Unknown]
  - Osteonecrosis of jaw [Unknown]
  - Impaired healing [Unknown]
  - Oedema mouth [Unknown]
  - Wound [Unknown]
  - Bone disorder [Unknown]
  - Pain in jaw [Unknown]
  - Trismus [Unknown]
  - Soft tissue inflammation [Unknown]
  - Osteosclerosis [Unknown]
  - Ligament disorder [Unknown]
  - Osteomyelitis [Unknown]
  - Infection [Unknown]
  - Actinomycosis [Unknown]
  - Mucosal inflammation [Unknown]
  - Primary sequestrum [Unknown]
  - Exposed bone in jaw [Unknown]
